FAERS Safety Report 9396019 (Version 2)
Quarter: 2013Q4

REPORT INFORMATION
  Report Type: Spontaneous
  Country: US (occurrence: US)
  Receive Date: 20130711
  Receipt Date: 20131213
  Transmission Date: 20140711
  Serious: Yes (Hospitalization, Other)
  Sender: FDA-Public Use
  Company Number: US-PFIZER INC-2013202687

PATIENT
  Age: 71 Year
  Sex: Female
  Weight: 76.19 kg

DRUGS (19)
  1. XELJANZ [Suspect]
     Dosage: 5 MG, 2X/DAY
     Route: 048
     Dates: start: 20130604
  2. XELJANZ [Suspect]
     Dosage: 5 MG, USE AS DIRECTED BY YOUR PHYSICIAN
  3. CYMBALTA [Concomitant]
     Dosage: 30 MG, UNK
  4. COD LIVER OIL [Concomitant]
     Dosage: UNK
  5. HYDROMORPHONE [Concomitant]
     Dosage: 2 MG, UNK
  6. METHOTREXATE [Concomitant]
     Dosage: 2.5 MG, UNK
  7. TRAMADOL HYDROCHLORIDE [Concomitant]
     Dosage: 50 MG, UNK
  8. BUPROPION [Concomitant]
     Dosage: 100 MG, UNK
  9. FLUOXETINE [Concomitant]
     Dosage: 20 MG, UNK
  10. HYDROCODONE W/ACETAMINOPHEN [Concomitant]
     Dosage: 10-325 MG
  11. PRAMIPEXOLE [Concomitant]
     Dosage: 0.5 MG, UNK
  12. VITAMIN D [Concomitant]
     Dosage: 1000 IU, UNK
  13. STOOL SOFTENER [Concomitant]
     Dosage: 240 MG, UNK
  14. MYLANTA [Concomitant]
     Dosage: UNK
  15. TYLENOL [Concomitant]
     Dosage: 500 MG, UNK
  16. IRON [Concomitant]
     Dosage: UNK
  17. FIORINAL [Concomitant]
     Dosage: UNK
  18. GLUCOSAMINE CHONDROITIN PM [Concomitant]
     Dosage: UNK
  19. HYOSCYAMINE [Concomitant]
     Dosage: UNK

REACTIONS (6)
  - Drug dose omission [Unknown]
  - Pneumonia [Unknown]
  - Condition aggravated [Unknown]
  - Inflammation [Unknown]
  - Arthralgia [Unknown]
  - Headache [Unknown]
